FAERS Safety Report 15563352 (Version 2)
Quarter: 2018Q4

REPORT INFORMATION
  Report Type: Report from Study
  Country: EC (occurrence: EC)
  Receive Date: 20181029
  Receipt Date: 20181030
  Transmission Date: 20190205
  Serious: Yes (Life-Threatening, Hospitalization)
  Sender: FDA-Public Use
  Company Number: PHHY2018EC109961

PATIENT
  Age: 79 Year
  Sex: Male

DRUGS (2)
  1. WARFARIN [Concomitant]
     Active Substance: WARFARIN
     Indication: PRODUCT USED FOR UNKNOWN INDICATION
     Route: 065
  2. ENTRESTO [Suspect]
     Active Substance: SACUBITRIL\VALSARTAN
     Indication: CARDIAC FAILURE
     Dosage: 50 MG, BID
     Route: 048
     Dates: start: 20180826

REACTIONS (11)
  - Renal disorder [Unknown]
  - Bone loss [Unknown]
  - Pulmonary oedema [Unknown]
  - Swelling [Unknown]
  - Insomnia [Unknown]
  - Cardiac failure [Not Recovered/Not Resolved]
  - Dyspnoea [Unknown]
  - Multiple organ dysfunction syndrome [Unknown]
  - Liver disorder [Unknown]
  - Fatigue [Unknown]
  - Urinary retention [Unknown]

NARRATIVE: CASE EVENT DATE: 20180907
